FAERS Safety Report 4331364-5 (Version None)
Quarter: 2004Q1

REPORT INFORMATION
  Report Type: 
  Country: None (occurrence: None)
  Receive Date: 20040331
  Receipt Date: 20040323
  Transmission Date: 20041129
  Serious: Yes (Death, Hospitalization)
  Sender: FDA-Public Use
  Company Number: 041-0981-M000028

PATIENT
  Age: 72 Year
  Sex: Male
  Weight: 88 kg

DRUGS (14)
  1. ATORVASTATIN             (ATORVASTATIN) [Suspect]
     Indication: CARDIAC DISORDER
     Dosage: SEE IMAGE
     Route: 048
     Dates: start: 19981223, end: 19990215
  2. ATORVASTATIN             (ATORVASTATIN) [Suspect]
     Indication: CARDIAC DISORDER
     Dosage: SEE IMAGE
     Route: 048
     Dates: start: 19990216, end: 20000511
  3. ALL OTHER THERAPEUTIC PRODUCTS [Concomitant]
  4. NADROPARIN CALCIUM        (NADROPARIN CALCIUM) [Concomitant]
  5. FELODIPINE [Concomitant]
  6. ACETYLSALICYLIC ACID SRT [Concomitant]
  7. INSULIN [Concomitant]
  8. METFORMIN HCL [Concomitant]
  9. CIPROFLOXACIN [Concomitant]
  10. PANTOPRAZOLE      (PANTOPRAZOLE) [Concomitant]
  11. QUINAPRIL HCL [Concomitant]
  12. NITROGLYCERIN [Concomitant]
  13. ATENOLOL [Concomitant]
  14. MAGNESIUM ASPARTATE         (MAGNESIUM ASPARTATE) [Concomitant]

REACTIONS (7)
  - ANASTOMOTIC HAEMORRHAGE [None]
  - AORTIC ANEURYSM [None]
  - DIALYSIS [None]
  - MYOCARDIAL INFARCTION [None]
  - PNEUMONIA [None]
  - POST PROCEDURAL COMPLICATION [None]
  - POST PROCEDURAL HAEMORRHAGE [None]
